FAERS Safety Report 10088257 (Version 3)
Quarter: 2014Q2

REPORT INFORMATION
  Report Type: Report from Study
  Country: US (occurrence: US)
  Receive Date: 20140421
  Receipt Date: 20140507
  Transmission Date: 20141212
  Serious: Yes (Hospitalization)
  Sender: FDA-Public Use
  Company Number: US-PFIZER INC-2014106999

PATIENT
  Age: 50 Year
  Sex: Male
  Weight: 125.9 kg

DRUGS (24)
  1. SOMAVERT [Suspect]
     Indication: ACROMEGALY
     Dosage: 10 MG, 2X/WEEK (2 INJECTIONS/WEEK)
     Route: 058
     Dates: start: 20140407, end: 20140410
  2. NORVASC [Concomitant]
     Indication: HYPERTENSION
     Dosage: UNK
     Route: 048
     Dates: start: 2010, end: 20140402
  3. ZOFRAN [Concomitant]
     Dosage: UNK
     Route: 048
     Dates: start: 201402
  4. MIRALAX [Concomitant]
     Dosage: UNK
     Route: 048
     Dates: start: 201402
  5. OXYCONTIN [Concomitant]
     Dosage: UNK
     Route: 048
     Dates: start: 2013
  6. PRANDIN [Concomitant]
     Indication: TYPE 2 DIABETES MELLITUS
     Dosage: UNK
     Route: 048
     Dates: start: 2012
  7. AMITRIPTYLINE [Concomitant]
     Dosage: UNK
     Route: 048
     Dates: start: 2012
  8. ALDACTONE [Concomitant]
     Dosage: UNK
     Route: 048
     Dates: start: 2012
  9. VITAMIN B12 [Concomitant]
     Dosage: UNK
     Route: 048
     Dates: start: 2011
  10. TESTOSTERONE [Concomitant]
     Indication: FOLLICLE-STIMULATING HORMONE DEFICIENCY
     Dosage: UNK
     Route: 030
     Dates: start: 2011
  11. TESTOSTERONE [Concomitant]
     Indication: LUTEINISING HORMONE DEFICIENCY
  12. VITAMIN D [Concomitant]
     Dosage: UNK
     Route: 048
     Dates: start: 2010
  13. SYNTHROID [Concomitant]
     Indication: BLOOD THYROID STIMULATING HORMONE
     Dosage: UNK
     Route: 048
     Dates: start: 2010
  14. SPIRIVA [Concomitant]
     Dosage: UNK
     Route: 048
     Dates: start: 2010
  15. PRILOSEC [Concomitant]
     Dosage: UNK
     Route: 048
     Dates: start: 2010
  16. NEURONTIN [Concomitant]
     Dosage: UNK
     Route: 048
     Dates: start: 2010
  17. NEURONTIN [Concomitant]
     Dosage: 300 MG, 3X/DAY
     Dates: start: 20140414
  18. METOPROLOL [Concomitant]
     Indication: HYPERTENSION
     Dosage: UNK
     Route: 048
     Dates: start: 2010
  19. LORAZEPAM [Concomitant]
     Dosage: UNK
     Route: 048
     Dates: start: 2010
  20. DONEPEZIL [Concomitant]
     Dosage: UNK
     Route: 048
     Dates: start: 2010
  21. DILAUDID [Concomitant]
     Dosage: UNK
     Route: 048
     Dates: start: 2010
  22. CYMBALTA [Concomitant]
     Dosage: UNK
     Route: 048
     Dates: start: 2010
  23. ASA [Concomitant]
     Dosage: UNK
     Route: 048
     Dates: start: 2010
  24. CRESTOR [Concomitant]
     Dosage: UNK
     Dates: start: 2009

REACTIONS (4)
  - Diarrhoea [Recovered/Resolved]
  - Chills [Recovered/Resolved]
  - Headache [Recovered/Resolved]
  - Influenza like illness [Recovered/Resolved]
